FAERS Safety Report 7766477 (Version 2)
Quarter: 2014Q1

REPORT INFORMATION
  Report Type: Spontaneous
  Country: US (occurrence: US)
  Receive Date: 20110120
  Receipt Date: 20140320
  Transmission Date: 20141002
  Serious: No
  Sender: FDA-Public Use
  Company Number: US-BIOGENIDEC-2011BI001935

PATIENT
  Sex: Male

DRUGS (4)
  1. AVONEX [Suspect]
     Indication: MULTIPLE SCLEROSIS
     Route: 030
     Dates: start: 20070921, end: 20100101
  2. AVONEX [Suspect]
     Indication: MULTIPLE SCLEROSIS
     Route: 030
     Dates: start: 201002
  3. MECLIZINE [Concomitant]
     Indication: PREMEDICATION
     Dates: start: 2005
  4. PHENERGAN [Concomitant]
     Indication: PREMEDICATION
     Dates: start: 2005

REACTIONS (10)
  - Hemiparesis [Recovered/Resolved]
  - Temperature intolerance [Not Recovered/Not Resolved]
  - Cognitive disorder [Not Recovered/Not Resolved]
  - Vertigo [Recovered/Resolved]
  - Muscle tightness [Not Recovered/Not Resolved]
  - Influenza like illness [Recovered/Resolved]
  - Chills [Not Recovered/Not Resolved]
  - Pyrexia [Not Recovered/Not Resolved]
  - Asthenia [Not Recovered/Not Resolved]
  - Fatigue [Not Recovered/Not Resolved]
